FAERS Safety Report 4407716-1 (Version None)
Quarter: 2004Q3

REPORT INFORMATION
  Report Type: 
  Country: None (occurrence: None)
  Receive Date: 20040726
  Receipt Date: 20040714
  Transmission Date: 20050211
  Serious: Yes (Other)
  Sender: FDA-Public Use
  Company Number: US-BRISTOL-MYERS SQUIBB COMPANY-12641247

PATIENT
  Age: 71 Year
  Sex: Male
  Weight: 86 kg

DRUGS (7)
  1. COUMADIN [Suspect]
     Indication: HEART VALVE REPLACEMENT
     Dosage: 40MG/WK UNTIL 6/11/04; ON 6/11 STARTED 37.5MG/WK, DISCONT'D 7/6/04; RE-INITIATED 35MG/WK ON 7/12
     Route: 048
     Dates: start: 19970401
  2. CRESTOR [Concomitant]
     Dosage: FOR A FEW YEARS
  3. LANOXIN [Concomitant]
  4. NIASPAN [Concomitant]
  5. SYNTHROID [Concomitant]
  6. WINE [Concomitant]
     Dosage: 1 GLASS PER NIGHT
  7. VITAMIN E [Concomitant]

REACTIONS (6)
  - ANGIOPATHY [None]
  - ARTHRALGIA [None]
  - CONTUSION [None]
  - MENISCUS LESION [None]
  - OEDEMA PERIPHERAL [None]
  - PROTHROMBIN TIME PROLONGED [None]
